FAERS Safety Report 16342197 (Version 1)
Quarter: 2019Q2

REPORT INFORMATION
  Report Type: Spontaneous
  Country: US (occurrence: US)
  Receive Date: 20190521
  Receipt Date: 20190521
  Transmission Date: 20190711
  Serious: Yes (Death)
  Sender: FDA-Public Use
  Company Number: None

PATIENT
  Age: 85 Year
  Sex: Male

DRUGS (4)
  1. ALLOPURINOL. [Concomitant]
     Active Substance: ALLOPURINOL
     Dates: start: 20190319, end: 20190325
  2. HYDREA [Concomitant]
     Active Substance: HYDROXYUREA
     Dates: start: 20190319, end: 20190325
  3. VENETOCLAX 100MG [Suspect]
     Active Substance: VENETOCLAX
     Indication: ACUTE MYELOID LEUKAEMIA
     Dates: start: 20190325, end: 20190325
  4. AZACITIDINE. [Concomitant]
     Active Substance: AZACITIDINE
     Dates: start: 20190325, end: 20190325

REACTIONS (10)
  - Blood lactate dehydrogenase increased [None]
  - Bradycardia [None]
  - Tumour lysis syndrome [None]
  - Blood phosphorus increased [None]
  - Hyperkalaemia [None]
  - Hyponatraemia [None]
  - Blood creatinine increased [None]
  - Blood calcium increased [None]
  - Syncope [None]
  - Blood urea increased [None]

NARRATIVE: CASE EVENT DATE: 20190325
